FAERS Safety Report 12738620 (Version 5)
Quarter: 2020Q3

REPORT INFORMATION
  Report Type: Report from Study
  Country: US (occurrence: US)
  Receive Date: 20160913
  Receipt Date: 20200728
  Transmission Date: 20201102
  Serious: Yes (Hospitalization, Other)
  Sender: FDA-Public Use
  Company Number: US-SA-2016SA155727

PATIENT
  Age: 58 Year
  Sex: Female

DRUGS (2)
  1. CAMBIA [Concomitant]
     Active Substance: DICLOFENAC POTASSIUM
     Dosage: UNK
     Route: 065
  2. ALEMTUZUMAB [Suspect]
     Active Substance: ALEMTUZUMAB
     Indication: MULTIPLE SCLEROSIS
     Dosage: 12 MG, QD
     Route: 041
     Dates: start: 20160822, end: 20160826

REACTIONS (26)
  - Headache [Recovering/Resolving]
  - Lymphoedema [Not Recovered/Not Resolved]
  - Hospitalisation [Unknown]
  - Wheezing [Recovering/Resolving]
  - Back pain [Recovering/Resolving]
  - Scar [Unknown]
  - Unevaluable event [Unknown]
  - Peripheral swelling [Recovering/Resolving]
  - Dyspnoea [Not Recovered/Not Resolved]
  - Hypoaesthesia [Not Recovered/Not Resolved]
  - Swelling face [Unknown]
  - Haemorrhage [Recovering/Resolving]
  - Nausea [Unknown]
  - Dyskinesia [Not Recovered/Not Resolved]
  - Fall [Recovered/Resolved]
  - Pain [Not Recovered/Not Resolved]
  - Haemorrhagic diathesis [Not Recovered/Not Resolved]
  - Immune system disorder [Unknown]
  - Burning sensation [Not Recovered/Not Resolved]
  - Arthropod bite [Not Recovered/Not Resolved]
  - Mobility decreased [Unknown]
  - Blood pressure abnormal [Unknown]
  - Muscle spasms [Not Recovered/Not Resolved]
  - Poor venous access [Not Recovered/Not Resolved]
  - Rash pruritic [Not Recovered/Not Resolved]
  - Condition aggravated [Not Recovered/Not Resolved]

NARRATIVE: CASE EVENT DATE: 2016
